FAERS Safety Report 17525010 (Version 4)
Quarter: 2020Q3

REPORT INFORMATION
  Report Type: Not Available
  Country: US (occurrence: US)
  Receive Date: 20200310
  Receipt Date: 20200819
  Transmission Date: 20201102
  Serious: No
  Sender: FDA-Public Use
  Company Number: US-NEUROCRINE BIOSCIENCES INC.-2020NBI00671

PATIENT
  Age: 79 Year
  Sex: Female

DRUGS (3)
  1. INGREZZA [Suspect]
     Active Substance: VALBENAZINE
     Indication: TARDIVE DYSKINESIA
     Route: 048
     Dates: start: 20191112, end: 20200311
  2. INGREZZA [Suspect]
     Active Substance: VALBENAZINE
     Route: 048
     Dates: start: 20200312
  3. INGREZZA [Suspect]
     Active Substance: VALBENAZINE
     Route: 048

REACTIONS (2)
  - Intentional product use issue [Unknown]
  - Therapeutic product effect decreased [Unknown]
